FAERS Safety Report 8237395-7 (Version None)
Quarter: 2012Q1

REPORT INFORMATION
  Report Type: 
  Country: None (occurrence: None)
  Receive Date: 20120323
  Receipt Date: 20120313
  Transmission Date: 20120608
  Serious: Yes (Life-Threatening, Hospitalization)
  Sender: FDA-Public Use
  Company Number: 2012-00470

PATIENT
  Age: 62 Year
  Sex: Female

DRUGS (15)
  1. OMEPRAZOLE [Concomitant]
  2. LEVOTHYROXINE SODIUM [Concomitant]
  3. MORPHINE SULFATE [Concomitant]
  4. FLUTICASONE PROPIONATE/SALMETEROL [Concomitant]
  5. ALBUTEROL [Concomitant]
  6. METOCLOPRAMIDE [Concomitant]
  7. ACETAMINOPHEN [Concomitant]
  8. CYCLIZINE [Concomitant]
  9. DOCUSATE SODIUM [Concomitant]
  10. ALGINIC ACID (SODIUM ALGINATE) [Concomitant]
  11. LISINOPRIL [Suspect]
     Indication: HYPERTENSION
     Dosage: 5 MG (5 MG, 1 IN 1 D), ORAL
     Route: 048
     Dates: start: 20100806, end: 20120229
  12. CITALOPRAM HYDROBROMIDE [Concomitant]
  13. GLICLAZIDE [Concomitant]
  14. PRAVASTATIN [Concomitant]
  15. TIOTROPIUM BROMIDE [Concomitant]

REACTIONS (5)
  - ANGIOEDEMA [None]
  - TONGUE OEDEMA [None]
  - WHEEZING [None]
  - SWOLLEN TONGUE [None]
  - PALLOR [None]
